FAERS Safety Report 6763772-7 (Version None)
Quarter: 2010Q2

REPORT INFORMATION
  Report Type: 
  Country: None (occurrence: None)
  Receive Date: 20100610
  Receipt Date: 20100602
  Transmission Date: 20101027
  Serious: Yes (Disabling)
  Sender: FDA-Public Use
  Company Number: US-ROCHE-702427

PATIENT
  Sex: Female
  Weight: 54.4 kg

DRUGS (5)
  1. BONIVA [Suspect]
     Indication: OSTEOPENIA
     Route: 048
     Dates: start: 20091206, end: 20100207
  2. CLIMARA [Concomitant]
     Dosage: STRENGTH AND DOSE: 0.0375
     Route: 062
     Dates: start: 20040101
  3. LIPITOR [Concomitant]
     Route: 048
     Dates: start: 20070101
  4. SYNTHROID [Concomitant]
     Indication: HYPOTHYROIDISM
     Route: 048
     Dates: start: 20040101
  5. TESTOSTERONE [Concomitant]
     Route: 062
     Dates: start: 20040101

REACTIONS (2)
  - ATRIAL FIBRILLATION [None]
  - CARDIAC FAILURE [None]
